FAERS Safety Report 12444065 (Version 2)
Quarter: 2018Q2

REPORT INFORMATION
  Report Type: Spontaneous
  Country: US (occurrence: US)
  Receive Date: 20160607
  Receipt Date: 20180515
  Transmission Date: 20180711
  Serious: No
  Sender: FDA-Public Use
  Company Number: US-SA-2016SA082649

PATIENT
  Age: 58 Year
  Sex: Male

DRUGS (3)
  1. TOUJEO [Suspect]
     Active Substance: INSULIN GLARGINE
     Dosage: DOSE:40 UNIT(S)
     Route: 065
     Dates: start: 201603
  2. SOLOSTAR [Concomitant]
     Active Substance: DEVICE
     Route: 065
     Dates: start: 201603
  3. NOVOLIN [Concomitant]
     Active Substance: INSULIN HUMAN
     Dosage: DOSE:40 UNIT(S)

REACTIONS (6)
  - Blood glucose increased [Unknown]
  - Underdose [Unknown]
  - Headache [Unknown]
  - Off label use [Unknown]
  - Chest pain [Recovering/Resolving]
  - Pruritus [Unknown]

NARRATIVE: CASE EVENT DATE: 2016
